FAERS Safety Report 7982989-7 (Version None)
Quarter: 2011Q4

REPORT INFORMATION
  Report Type: 
  Country: None (occurrence: None)
  Receive Date: 20111215
  Receipt Date: 20111202
  Transmission Date: 20120403
  Serious: Yes (Other)
  Sender: FDA-Public Use
  Company Number: DE-MYLANLABS-2011S1024732

PATIENT
  Age: 47 Year
  Sex: Female

DRUGS (12)
  1. VENLAFAXINE [Suspect]
     Indication: PRODUCT USED FOR UNKNOWN INDICATION
     Dosage: DAILY DOSE: 150 MG MILLIGRAM(S) EVERY DAY
     Route: 048
     Dates: end: 20101019
  2. VENLAFAXINE [Suspect]
     Route: 048
     Dates: start: 20101111, end: 20101112
  3. MADOPAR [Concomitant]
     Indication: PRODUCT USED FOR UNKNOWN INDICATION
     Route: 048
     Dates: start: 20101109, end: 20101121
  4. VENLAFAXINE [Suspect]
     Route: 048
     Dates: start: 20101102, end: 20101108
  5. PROMETHAZINE HCL [Concomitant]
     Indication: PRODUCT USED FOR UNKNOWN INDICATION
     Route: 048
     Dates: start: 20101105, end: 20101107
  6. PROMETHAZINE HCL [Concomitant]
     Route: 048
     Dates: start: 20101115
  7. VENLAFAXINE [Suspect]
     Route: 048
     Dates: start: 20101109, end: 20101110
  8. VENLAFAXINE [Suspect]
     Route: 048
     Dates: start: 20101113, end: 20101116
  9. PROMETHAZINE HCL [Concomitant]
     Route: 048
     Dates: start: 20101108, end: 20101109
  10. VENLAFAXINE [Suspect]
     Route: 048
     Dates: start: 20101020, end: 20101101
  11. VENLAFAXINE [Suspect]
     Route: 048
     Dates: start: 20101117, end: 20101118
  12. METOPROLOL SUCCINATE [Concomitant]
     Indication: PRODUCT USED FOR UNKNOWN INDICATION
     Dosage: 70/75 MG
     Route: 048
     Dates: end: 20101115

REACTIONS (1)
  - NIGHTMARE [None]
